FAERS Safety Report 5796381-7 (Version None)
Quarter: 2008Q2

REPORT INFORMATION
  Report Type: 
  Country: None (occurrence: None)
  Receive Date: 20080627
  Receipt Date: 20080618
  Transmission Date: 20081010
  Serious: Yes (Hospitalization)
  Sender: FDA-Public Use
  Company Number: POMP-1000208

PATIENT
  Age: 5 Month
  Sex: Male
  Weight: 5.4 kg

DRUGS (2)
  1. MYOZYME [Suspect]
     Indication: GLYCOGEN STORAGE DISEASE TYPE II
     Dosage: 20 MG/KG, Q2W, INTRAVENOUS
     Route: 042
     Dates: start: 20070705
  2. OXYGEN (OXYGEN) [Concomitant]

REACTIONS (14)
  - ATELECTASIS [None]
  - BAND NEUTROPHIL PERCENTAGE DECREASED [None]
  - BLOOD MAGNESIUM INCREASED [None]
  - FAECES DISCOLOURED [None]
  - GRUNTING [None]
  - HYPERTROPHIC CARDIOMYOPATHY [None]
  - IRRITABILITY [None]
  - LYMPHOCYTE PERCENTAGE INCREASED [None]
  - METAPNEUMOVIRUS INFECTION [None]
  - MONOCYTE PERCENTAGE INCREASED [None]
  - RESPIRATORY DISTRESS [None]
  - VENTRICULAR HYPERTROPHY [None]
  - VIRAL TEST POSITIVE [None]
  - VOMITING [None]
